FAERS Safety Report 5767192-3 (Version None)
Quarter: 2008Q2

REPORT INFORMATION
  Report Type: 
  Country: None (occurrence: None)
  Receive Date: 20080611
  Receipt Date: 20080611
  Transmission Date: 20081010
  Serious: Yes (Hospitalization)
  Sender: FDA-Public Use
  Company Number: None

PATIENT
  Sex: Male
  Weight: 67.9 kg

DRUGS (3)
  1. CYTARABINE [Suspect]
     Dosage: 1190 MG
     Dates: end: 20080515
  2. DAUNORUBICIN HCL [Suspect]
     Dosage: 459 MG
     Dates: end: 20080511
  3. ETOPOSIDE [Suspect]
     Dosage: 510 MG
     Dates: end: 20080511

REACTIONS (9)
  - BONE MARROW FAILURE [None]
  - CARDIAC FAILURE CONGESTIVE [None]
  - CARDIOMYOPATHY [None]
  - INFLAMMATION [None]
  - MUCOSAL INFLAMMATION [None]
  - PERICARDIAL EFFUSION [None]
  - PNEUMONITIS [None]
  - RESPIRATORY FAILURE [None]
  - VIRAL INFECTION [None]
